FAERS Safety Report 11898970 (Version 2)
Quarter: 2016Q1

REPORT INFORMATION
  Report Type: Spontaneous
  Country: US (occurrence: US)
  Receive Date: 20160108
  Receipt Date: 20160308
  Transmission Date: 20160526
  Serious: No
  Sender: FDA-Public Use
  Company Number: US-PFIZER INC-2015449567

PATIENT
  Age: 45 Year
  Sex: Female

DRUGS (2)
  1. MENEST [Suspect]
     Active Substance: ESTROGENS, ESTERIFIED
     Dosage: 2.5 MG, 1X/DAY
     Route: 048
     Dates: start: 201504
  2. MENEST [Suspect]
     Active Substance: ESTROGENS, ESTERIFIED
     Dosage: 1.25 MG, 1X/DAY
     Route: 048
     Dates: start: 201409

REACTIONS (1)
  - Gluten sensitivity [Unknown]
